FAERS Safety Report 23238808 (Version 1)
Quarter: 2023Q4

REPORT INFORMATION
  Report Type: Spontaneous
  Country: US (occurrence: US)
  Receive Date: 20231129
  Receipt Date: 20231129
  Transmission Date: 20240109
  Serious: No
  Sender: FDA-Public Use
  Company Number: US-GLENMARK PHARMACEUTICALS-2023GMK078415

PATIENT

DRUGS (1)
  1. APREPITANT [Suspect]
     Active Substance: APREPITANT
     Indication: Impaired gastric emptying
     Dosage: UNK, QD
     Route: 065

REACTIONS (1)
  - Drug effective for unapproved indication [Unknown]
